FAERS Safety Report 5245521-7 (Version None)
Quarter: 2007Q1

REPORT INFORMATION
  Report Type: 
  Country: None (occurrence: None)
  Receive Date: 20070223
  Receipt Date: 20070214
  Transmission Date: 20070707
  Serious: Yes (Hospitalization)
  Sender: FDA-Public Use
  Company Number: DE-PFIZER INC-2006152378

PATIENT
  Age: 59 Year
  Sex: Female

DRUGS (3)
  1. TAFIL [Suspect]
     Indication: RESTLESSNESS
     Route: 048
  2. OPIPRAMOL HYDROCHLORIDE [Concomitant]
  3. TAVOR [Concomitant]

REACTIONS (7)
  - BALANCE DISORDER [None]
  - DEPENDENCE [None]
  - DRUG INEFFECTIVE [None]
  - DRUG WITHDRAWAL SYNDROME [None]
  - PAIN IN EXTREMITY [None]
  - SLEEP DISORDER [None]
  - TREMOR [None]
